FAERS Safety Report 9712767 (Version 1)
Quarter: 2013Q4

REPORT INFORMATION
  Report Type: Spontaneous
  Country: US (occurrence: None)
  Receive Date: 20131125
  Receipt Date: 20131125
  Transmission Date: 20140711
  Serious: No
  Sender: FDA-Public Use
  Company Number: None

PATIENT
  Age: 13 Year
  Sex: Male
  Weight: 47.63 kg

DRUGS (1)
  1. METHYLPHENIDATE ER [Suspect]
     Route: 048

REACTIONS (7)
  - Sluggishness [None]
  - Anxiety [None]
  - Drug effect decreased [None]
  - Incorrect dose administered [None]
  - Product quality issue [None]
  - Product label confusion [None]
  - Product substitution issue [None]
